FAERS Safety Report 6904741-3 (Version None)
Quarter: 2010Q3

REPORT INFORMATION
  Report Type: 
  Country: None (occurrence: None)
  Receive Date: 20100804
  Receipt Date: 20100728
  Transmission Date: 20110219
  Serious: Yes (Other)
  Sender: FDA-Public Use
  Company Number: 162081

PATIENT
  Age: 64 Year
  Sex: Female
  Weight: 61 kg

DRUGS (5)
  1. AVONEX [Suspect]
     Indication: MULTIPLE SCLEROSIS
     Route: 030
     Dates: start: 19980101
  2. PROZAC [Concomitant]
     Indication: DEPRESSION
     Dates: start: 19970101
  3. MECLIZINE [Concomitant]
     Indication: DIZZINESS
     Dates: start: 19970101
  4. BACLOFEN [Concomitant]
     Indication: MULTIPLE SCLEROSIS
     Dates: start: 19980101
  5. NEURONTIN [Concomitant]
     Indication: MULTIPLE SCLEROSIS
     Dates: start: 19970101

REACTIONS (3)
  - ANAEMIA [None]
  - PAIN IN EXTREMITY [None]
  - SARCOIDOSIS [None]
